FAERS Safety Report 9305058 (Version 1)
Quarter: 2013Q2

REPORT INFORMATION
  Report Type: Spontaneous
  Country: US (occurrence: None)
  Receive Date: 20130522
  Receipt Date: 20130522
  Transmission Date: 20140414
  Serious: No
  Sender: FDA-Public Use
  Company Number: None

PATIENT
  Age: 47 Year
  Sex: Female

DRUGS (5)
  1. AZITHROMYCIN [Suspect]
     Dates: start: 20111212, end: 20111217
  2. LEVOTHYROXINE [Concomitant]
  3. MIRTAZAPINE [Concomitant]
  4. VALACICLOVIR [Concomitant]
  5. MAXIPLEX [Concomitant]

REACTIONS (11)
  - Drug-induced liver injury [None]
  - Iron overload [None]
  - Aspartate aminotransferase increased [None]
  - Alanine aminotransferase increased [None]
  - Blood alkaline phosphatase increased [None]
  - Rash [None]
  - Pruritus [None]
  - Pyrexia [None]
  - Jaundice [None]
  - Blood bilirubin increased [None]
  - Hepatic fibrosis [None]
